FAERS Safety Report 5985850-2 (Version None)
Quarter: 2008Q4

REPORT INFORMATION
  Report Type: 
  Country: None (occurrence: None)
  Receive Date: 20081209
  Receipt Date: 20080401
  Transmission Date: 20090506
  Serious: No
  Sender: FDA-Public Use
  Company Number: US-AMGEN-KDL272541

PATIENT
  Sex: Female

DRUGS (1)
  1. ENBREL [Suspect]
     Indication: RHEUMATOID ARTHRITIS
     Route: 058
     Dates: start: 20040501

REACTIONS (5)
  - ABDOMINAL PAIN [None]
  - BACK PAIN [None]
  - NASOPHARYNGITIS [None]
  - RED BLOOD CELL SEDIMENTATION RATE INCREASED [None]
  - WHITE BLOOD CELL COUNT INCREASED [None]
